FAERS Safety Report 4947384-3 (Version None)
Quarter: 2006Q1

REPORT INFORMATION
  Report Type: 
  Country: None (occurrence: None)
  Receive Date: 20060317
  Receipt Date: 20060314
  Transmission Date: 20060701
  Serious: Yes (Other)
  Sender: FDA-Public Use
  Company Number: US-MERCK-0603USA02392

PATIENT
  Age: 24 Month
  Sex: Female

DRUGS (2)
  1. PRIMAXIN [Suspect]
     Indication: RESPIRATORY TRACT INFECTION
     Route: 042
  2. CEREBYX [Concomitant]
     Route: 065

REACTIONS (1)
  - CONVULSION [None]
